FAERS Safety Report 8738284 (Version 2)
Quarter: 2012Q4

REPORT INFORMATION
  Report Type: Report from Study
  Country: JP (occurrence: JP)
  Receive Date: 20120823
  Receipt Date: 20121204
  Transmission Date: 20130627
  Serious: No
  Sender: FDA-Public Use
  Company Number: JP-009507513-2012SP036968

PATIENT

DRUGS (17)
  1. PEGINTERFERON ALFA-2B [Suspect]
     Indication: CHRONIC HEPATITIS C
     Dosage: 1.34 Microgram per kilogram, qw
     Route: 058
     Dates: start: 20120417, end: 20120528
  2. PEGINTERFERON ALFA-2B [Suspect]
     Dosage: 1.34 Microgram per kilogram, qw
     Route: 058
     Dates: end: 20120604
  3. PEGINTERFERON ALFA-2B [Suspect]
     Dosage: 1.34 Microgram per kilogram, qw
     Route: 058
     Dates: start: 20120611
  4. REBETOL [Suspect]
     Indication: CHRONIC HEPATITIS C
     Dosage: 600 mg, QD
     Route: 048
     Dates: start: 20120417, end: 20120430
  5. REBETOL [Suspect]
     Dosage: 200 mg, QD
     Route: 048
     Dates: start: 20120501, end: 20120506
  6. REBETOL [Suspect]
     Dosage: 400 mg, QD
     Route: 048
     Dates: start: 20120507, end: 20120528
  7. REBETOL [Suspect]
     Dosage: 200 mg, qd
     Route: 048
     Dates: start: 20120611
  8. TELAVIC [Suspect]
     Indication: CHRONIC HEPATITIS C
     Dosage: 1500 mg, QD
     Route: 048
     Dates: start: 20120417, end: 20120528
  9. TELAVIC [Suspect]
     Dosage: 1000 mg, qd
     Route: 048
     Dates: start: 20120611, end: 20120709
  10. LOXONIN [Concomitant]
     Indication: CHRONIC HEPATITIS C
     Dosage: 60 mg/day, as needed
     Route: 048
     Dates: start: 20120417
  11. TAKEPRON [Concomitant]
     Indication: CHRONIC HEPATITIS C
     Dosage: 15 mg, qd
     Route: 048
     Dates: start: 20120423
  12. POLAPREZINC [Concomitant]
     Indication: DECREASED APPETITE
     Dosage: 150 mg, qd
     Route: 048
     Dates: start: 20120507
  13. ALLELOCK [Concomitant]
     Indication: PRURITUS
     Dosage: 10 mg, qd
     Route: 048
     Dates: start: 20120514, end: 20120527
  14. ALLELOCK [Concomitant]
     Dosage: 10 mg, qd
     Route: 048
  15. EURAX-H [Concomitant]
     Indication: PRURITUS
     Dosage: UNK UNK, PRN
     Route: 061
     Dates: start: 20120514
  16. FERROMIA [Concomitant]
     Indication: ANAEMIA
     Dosage: 100 mg, qd
     Route: 048
     Dates: start: 20120521
  17. NOLVADEX [Concomitant]
     Indication: BREAST CANCER
     Dosage: 20 mg, qd
     Route: 048
     Dates: start: 201004

REACTIONS (1)
  - Anaemia [Not Recovered/Not Resolved]
